FAERS Safety Report 22371562 (Version 1)
Quarter: 2023Q2

REPORT INFORMATION
  Report Type: Report from Study
  Country: CA (occurrence: CA)
  Receive Date: 20230526
  Receipt Date: 20230526
  Transmission Date: 20230721
  Serious: Yes (Other)
  Sender: FDA-Public Use
  Company Number: CA-JNJFOC-20230433267

PATIENT
  Age: 14 Year
  Sex: Female
  Weight: 60 kg

DRUGS (3)
  1. REMICADE [Suspect]
     Active Substance: INFLIXIMAB
     Indication: Colitis ulcerative
     Dosage: THE PATIENT HAD PRESCRIBED 7.5 MG/KG 0,2,6 EVERY 6 WEEK.
     Route: 042
     Dates: start: 20230501
  2. REMICADE [Suspect]
     Active Substance: INFLIXIMAB
     Dosage: TOP UP DOSE
     Route: 042
     Dates: start: 202305
  3. REMICADE [Suspect]
     Active Substance: INFLIXIMAB
     Dosage: ROUND UP, WEEK 2 INDUCTION WAS SUPPLEMENT WEEK 2 DOSE
     Route: 042
     Dates: start: 202305

REACTIONS (2)
  - Colitis ulcerative [Unknown]
  - Off label use [Unknown]

NARRATIVE: CASE EVENT DATE: 20230501
